FAERS Safety Report 8304606-9 (Version None)
Quarter: 2012Q2

REPORT INFORMATION
  Report Type: 
  Country: None (occurrence: None)
  Receive Date: 20120423
  Receipt Date: 20120413
  Transmission Date: 20120825
  Serious: Yes (Other)
  Sender: FDA-Public Use
  Company Number: US-JNJFOC-20120301107

PATIENT
  Sex: Female
  Weight: 106.6 kg

DRUGS (2)
  1. XARELTO [Suspect]
     Indication: HIP ARTHROPLASTY
     Route: 048
     Dates: start: 20120213
  2. XARELTO [Suspect]
     Indication: THROMBOSIS PROPHYLAXIS
     Route: 048
     Dates: start: 20120213

REACTIONS (1)
  - ANAEMIA POSTOPERATIVE [None]
